FAERS Safety Report 11860501 (Version 7)
Quarter: 2019Q1

REPORT INFORMATION
  Report Type: Spontaneous
  Country: US (occurrence: US)
  Receive Date: 20151222
  Receipt Date: 20190315
  Transmission Date: 20190417
  Serious: Yes (Hospitalization)
  Sender: FDA-Public Use
  Company Number: US-PFIZER INC-2015460912

PATIENT
  Age: 63 Year
  Sex: Female
  Weight: 59 kg

DRUGS (8)
  1. PAXIL [Concomitant]
     Active Substance: PAROXETINE HYDROCHLORIDE
     Indication: CEREBRAL DISORDER
     Dosage: 30 MG, 2X/DAY
     Dates: start: 2003
  2. LYRICA [Suspect]
     Active Substance: PREGABALIN
     Indication: ELECTROCUTION
     Dosage: 75 MG, 1X/DAY
     Route: 048
     Dates: start: 20151215
  3. SYNTHROID [Concomitant]
     Active Substance: LEVOTHYROXINE SODIUM
     Dosage: UNK, 1X/DAY
  4. LIPITOR [Concomitant]
     Active Substance: ATORVASTATIN CALCIUM
     Dosage: UNK, 1X/DAY
  5. LYRICA [Suspect]
     Active Substance: PREGABALIN
     Indication: NERVE INJURY
     Dosage: 75 MG, 2X/DAY
  6. LYRICA [Suspect]
     Active Substance: PREGABALIN
     Indication: PAIN IN EXTREMITY
     Dosage: 75 MG, 2X/DAY
     Route: 048
     Dates: start: 2003
  7. SEROQUEL [Concomitant]
     Active Substance: QUETIAPINE FUMARATE
     Indication: SLEEP DISORDER
     Dosage: UNK, 1X/DAY (AT BED TIME)
     Dates: start: 2003
  8. VISTARIL [Concomitant]
     Active Substance: HYDROXYZINE PAMOATE
     Dosage: UNK, AS NEEDED
     Dates: start: 2003

REACTIONS (12)
  - Drug effect incomplete [Unknown]
  - Arthralgia [Recovered/Resolved]
  - Pain in extremity [Recovered/Resolved]
  - Intentional product use issue [Unknown]
  - Balance disorder [Recovered/Resolved]
  - Asthenia [Recovered/Resolved]
  - Gait disturbance [Recovered/Resolved]
  - Malaise [Recovered/Resolved]
  - Loss of personal independence in daily activities [Recovered/Resolved]
  - Tremor [Not Recovered/Not Resolved]
  - Back pain [Unknown]
  - Hernia [Unknown]

NARRATIVE: CASE EVENT DATE: 2010
